FAERS Safety Report 16034025 (Version 1)
Quarter: 2019Q1

REPORT INFORMATION
  Report Type: Spontaneous
  Country: US (occurrence: US)
  Receive Date: 20190305
  Receipt Date: 20190305
  Transmission Date: 20190418
  Serious: No
  Sender: FDA-Public Use
  Company Number: US-IMPAX LABORATORIES, LLC-2018-IPXL-02613

PATIENT
  Sex: Female
  Weight: 55 kg

DRUGS (4)
  1. RYTARY [Suspect]
     Active Substance: CARBIDOPA\LEVODOPA
     Dosage: 23.75 MG/95 MG CAPSULSE, 1 CAPSULE, 4 TIMES DAILY (8 AM, 3 PM, 8AM, AND AT MID NIGHT)
     Route: 048
     Dates: start: 2018
  2. RASAGILINE. [Concomitant]
     Active Substance: RASAGILINE
     Indication: PARKINSON^S DISEASE
     Dosage: UNK
     Route: 048
  3. AMLODIPINE [Concomitant]
     Active Substance: AMLODIPINE BESYLATE
     Indication: HYPERTENSION
     Dosage: UNK
     Route: 048
  4. RYTARY [Suspect]
     Active Substance: CARBIDOPA\LEVODOPA
     Indication: PARKINSON^S DISEASE
     Dosage: 23.75/95MG, 1 CAPSULE, 3 TIMES DAILY AT 8 AM, 3 PM, AND 8 PM
     Route: 048
     Dates: start: 2017, end: 2018

REACTIONS (7)
  - Pain [Unknown]
  - Dystonia [Unknown]
  - Drug effect incomplete [Not Recovered/Not Resolved]
  - Dyskinesia [Unknown]
  - Treatment noncompliance [Unknown]
  - Muscle twitching [Unknown]
  - Expired product administered [Unknown]
